FAERS Safety Report 22653846 (Version 1)
Quarter: 2023Q2

REPORT INFORMATION
  Report Type: Report from Study
  Country: US (occurrence: US)
  Receive Date: 20230629
  Receipt Date: 20230629
  Transmission Date: 20230721
  Serious: Yes (Other)
  Sender: FDA-Public Use
  Company Number: US-002147023-NVSC2023US144909

PATIENT
  Sex: Female

DRUGS (1)
  1. GABAPENTIN [Suspect]
     Active Substance: GABAPENTIN
     Indication: Psoriatic arthropathy
     Dosage: UNK
     Route: 065

REACTIONS (25)
  - Neuropathy peripheral [Unknown]
  - Pain [Unknown]
  - Burning sensation [Unknown]
  - Psoriatic arthropathy [Unknown]
  - Swelling [Unknown]
  - Fatigue [Unknown]
  - Pain in extremity [Unknown]
  - Neck pain [Unknown]
  - Back pain [Unknown]
  - Arthralgia [Unknown]
  - Musculoskeletal stiffness [Unknown]
  - Psoriasis [Unknown]
  - Rash [Unknown]
  - Dry skin [Unknown]
  - Pain [Unknown]
  - Mean cell haemoglobin concentration decreased [Unknown]
  - Red cell distribution width increased [Unknown]
  - C-reactive protein increased [Unknown]
  - Brain fog [Unknown]
  - HLA-B*27 positive [Unknown]
  - Fibromyalgia [Unknown]
  - Dyspepsia [Unknown]
  - Hand deformity [Unknown]
  - Drug ineffective [Unknown]
  - Product use in unapproved indication [Unknown]
